FAERS Safety Report 6764031-9 (Version None)
Quarter: 2010Q2

REPORT INFORMATION
  Report Type: 
  Country: None (occurrence: None)
  Receive Date: 20100610
  Receipt Date: 20100215
  Transmission Date: 20101027
  Serious: No
  Sender: FDA-Public Use
  Company Number: US-ASTRAZENECA-2010SE06802

PATIENT
  Sex: Female

DRUGS (4)
  1. FASLODEX [Suspect]
     Dosage: 500 MG Q 2 WEEKS X 2
     Route: 030
  2. ZOMETA [Concomitant]
  3. VITAMIN D [Concomitant]
  4. CALCIUM CARBONATE [Concomitant]

REACTIONS (1)
  - LIVER FUNCTION TEST ABNORMAL [None]
